FAERS Safety Report 5065898-5 (Version None)
Quarter: 2006Q3

REPORT INFORMATION
  Report Type: 
  Country: None (occurrence: None)
  Receive Date: 20060728
  Receipt Date: 20060728
  Transmission Date: 20061208
  Serious: Yes (Other)
  Sender: FDA-Public Use
  Company Number: None

PATIENT
  Age: 36 Year
  Sex: Male
  Weight: 99.7913 kg

DRUGS (3)
  1. NEURONTIN [Suspect]
     Indication: BACK PAIN
     Dosage: 300MG  DAILY FOR 7DAYS  THEN TWICE A DAY  PO
     Route: 048
     Dates: start: 20030101, end: 20040113
  2. NEURONTIN [Suspect]
     Indication: DIABETES MELLITUS
     Dosage: 300MG  DAILY FOR 7DAYS  THEN TWICE A DAY  PO
     Route: 048
     Dates: start: 20030101, end: 20040113
  3. NEURONTIN [Suspect]
     Indication: NECK PAIN
     Dosage: 300MG  DAILY FOR 7DAYS  THEN TWICE A DAY  PO
     Route: 048
     Dates: start: 20030101, end: 20040113

REACTIONS (2)
  - ABNORMAL BEHAVIOUR [None]
  - SUICIDAL IDEATION [None]
